FAERS Safety Report 6489834-X (Version None)
Quarter: 2009Q4

REPORT INFORMATION
  Report Type: 
  Country: None (occurrence: None)
  Receive Date: 20091211
  Receipt Date: 20091201
  Transmission Date: 20100525
  Serious: Yes (Hospitalization, Other)
  Sender: FDA-Public Use
  Company Number: US-BIOGENIDEC-2009BI035005

PATIENT
  Age: 62 Year
  Sex: Female

DRUGS (13)
  1. TYSABRI [Suspect]
     Indication: MULTIPLE SCLEROSIS
     Route: 042
     Dates: start: 20071030, end: 20090827
  2. FOSAMAX [Concomitant]
  3. LEVOTHYROXINE SODIUM [Concomitant]
  4. VESICARE [Concomitant]
  5. SIMVASTATIN [Concomitant]
  6. CARVEDILOL [Concomitant]
  7. LISINOPRIL [Concomitant]
  8. PAROXETINE [Concomitant]
  9. ZETIA [Concomitant]
  10. DIVALPROEX SODIUM [Concomitant]
  11. ASPIRIN [Concomitant]
  12. VITAMIN B COMPLEX CAP [Concomitant]
  13. PLAVIX [Concomitant]

REACTIONS (5)
  - INCONTINENCE [None]
  - PROTEUS INFECTION [None]
  - SIMPLE PARTIAL SEIZURES [None]
  - URINARY TRACT INFECTION [None]
  - VAGINAL INFECTION [None]
